FAERS Safety Report 21216972 (Version 1)
Quarter: 2022Q3

REPORT INFORMATION
  Report Type: Spontaneous
  Country: US (occurrence: US)
  Receive Date: 20220816
  Receipt Date: 20220816
  Transmission Date: 20221027
  Serious: No
  Sender: FDA-Public Use
  Company Number: US-BAYER-2022A113960

PATIENT
  Age: 78 Year
  Sex: Male

DRUGS (4)
  1. MIRALAX [Suspect]
     Active Substance: POLYETHYLENE GLYCOL 3350
     Indication: Constipation
     Dosage: 1 CAPFUL A DAY
     Route: 048
     Dates: start: 20220811
  2. INSULIN NOS [Concomitant]
     Active Substance: INSULIN NOS
  3. VITAMINS NOS [Concomitant]
     Active Substance: VITAMINS
  4. MINERALS [Concomitant]
     Active Substance: MINERALS

REACTIONS (2)
  - Drug ineffective [Not Recovered/Not Resolved]
  - Infrequent bowel movements [Not Recovered/Not Resolved]

NARRATIVE: CASE EVENT DATE: 20220811
